FAERS Safety Report 22518106 (Version 1)
Quarter: 2023Q2

REPORT INFORMATION
  Report Type: Report from Study
  Country: CA (occurrence: CA)
  Receive Date: 20230605
  Receipt Date: 20230605
  Transmission Date: 20230721
  Serious: Yes (Other)
  Sender: FDA-Public Use
  Company Number: CA-ABBVIE-5188539

PATIENT
  Age: 52 Year
  Sex: Female

DRUGS (1)
  1. RINVOQ [Suspect]
     Active Substance: UPADACITINIB
     Indication: Ankylosing spondylitis
     Dosage: FORM STRENGTH: 15 MILLIGRAM
     Route: 048
     Dates: start: 20230501, end: 20230528

REACTIONS (15)
  - Gastrointestinal injury [Unknown]
  - Adverse drug reaction [Unknown]
  - Dizziness [Unknown]
  - Pain [Unknown]
  - Feeling abnormal [Unknown]
  - Pyrexia [Unknown]
  - Hyperhidrosis [Unknown]
  - Flatulence [Unknown]
  - Sensory disturbance [Unknown]
  - Pain in extremity [Unknown]
  - Fatigue [Unknown]
  - Vision blurred [Unknown]
  - Dyspnoea [Unknown]
  - Ulcer [Unknown]
  - Chills [Unknown]

NARRATIVE: CASE EVENT DATE: 20230501
